FAERS Safety Report 7824312-4 (Version None)
Quarter: 2011Q4

REPORT INFORMATION
  Report Type: 
  Country: None (occurrence: None)
  Receive Date: 20111014
  Receipt Date: 20111007
  Transmission Date: 20120403
  Serious: Yes (Other)
  Sender: FDA-Public Use
  Company Number: 2011MA002363

PATIENT
  Age: 61 Year
  Sex: Female

DRUGS (13)
  1. SOTALOL HCL [Concomitant]
  2. HERBAL MEDICATION [Concomitant]
  3. DANDELION [Concomitant]
  4. DILTIAZEM HCL [Suspect]
     Dosage: PO
     Route: 048
     Dates: start: 20110106
  5. RAMIPRIL [Suspect]
     Indication: BLOOD PRESSURE INCREASED
     Dosage: 2.5 MG
     Dates: start: 20101118
  6. MEBEVERINE [Concomitant]
  7. DILTIAZEM [Suspect]
     Dosage: PO
     Route: 048
     Dates: start: 20101006, end: 20101104
  8. SIMVASTATIN [Concomitant]
  9. LOSARTAN POTASSIUM [Concomitant]
  10. ASPIRIN [Concomitant]
  11. BISOPROLOL FUMARATE [Suspect]
     Dates: start: 20101001, end: 20101006
  12. INDAPAMIDE [Concomitant]
  13. BENDROFLUMETHIAZIDE [Concomitant]

REACTIONS (6)
  - VERTIGO [None]
  - GAIT DISTURBANCE [None]
  - RETINAL MIGRAINE [None]
  - NAUSEA [None]
  - VISION BLURRED [None]
  - DIZZINESS [None]
